FAERS Safety Report 17557095 (Version 5)
Quarter: 2021Q1

REPORT INFORMATION
  Report Type: Spontaneous
  Country: US (occurrence: US)
  Receive Date: 20200318
  Receipt Date: 20210226
  Transmission Date: 20210419
  Serious: No
  Sender: FDA-Public Use
  Company Number: US-BIOGEN-2020BI00850385

PATIENT
  Age: 51 Year
  Sex: Female

DRUGS (4)
  1. KEPPRA [Concomitant]
     Active Substance: LEVETIRACETAM
     Route: 048
  2. CLONAZEPAM. [Concomitant]
     Active Substance: CLONAZEPAM
     Route: 048
  3. TYSABRI [Suspect]
     Active Substance: NATALIZUMAB
     Indication: MULTIPLE SCLEROSIS
     Dosage: INFUSED OVER 1 HOUR
     Route: 065
     Dates: start: 20110408
  4. LYSINE [Concomitant]
     Active Substance: LYSINE
     Route: 048

REACTIONS (10)
  - Visual impairment [Unknown]
  - Aphasia [Unknown]
  - Muscle spasms [Unknown]
  - Frustration tolerance decreased [Recovered/Resolved]
  - Blepharospasm [Unknown]
  - Eye pain [Unknown]
  - Sleep apnoea syndrome [Unknown]
  - Disturbance in attention [Recovered/Resolved]
  - Memory impairment [Recovered/Resolved]
  - Fatigue [Unknown]

NARRATIVE: CASE EVENT DATE: 201508
